FAERS Safety Report 6206563-8 (Version None)
Quarter: 2009Q2

REPORT INFORMATION
  Report Type: 
  Country: None (occurrence: None)
  Receive Date: 20090528
  Receipt Date: 20090526
  Transmission Date: 20091009
  Serious: Yes (Other)
  Sender: FDA-Public Use
  Company Number: US-JNJFOC-20090506015

PATIENT
  Sex: Female

DRUGS (2)
  1. TRINESSA [Suspect]
     Indication: CONTRACEPTION
     Route: 048
  2. OVCON-35 [Suspect]
     Indication: DRUG USE FOR UNKNOWN INDICATION
     Route: 065

REACTIONS (6)
  - HYPERTHYROIDISM [None]
  - HYPOTHYROIDISM [None]
  - MENSTRUATION DELAYED [None]
  - METRORRHAGIA [None]
  - TABLET ISSUE [None]
  - VISION BLURRED [None]
